FAERS Safety Report 19643302 (Version 1)
Quarter: 2021Q3

REPORT INFORMATION
  Report Type: Spontaneous
  Country: US (occurrence: US)
  Receive Date: 20210730
  Receipt Date: 20210730
  Transmission Date: 20211014
  Serious: No
  Sender: FDA-Public Use
  Company Number: US-ENDO PHARMACEUTICALS INC-2021-010076

PATIENT
  Age: 55 Year
  Sex: Female
  Weight: 49.89 kg

DRUGS (3)
  1. ALLERGAN [Concomitant]
     Active Substance: PAPAIN
     Indication: MULTIPLE ALLERGIES
     Dosage: 1 DF, DAILY (1 PILL AT NIGHT)
     Route: 065
  2. OMEPRAZOLE. [Concomitant]
     Active Substance: OMEPRAZOLE
     Indication: DYSPEPSIA
     Dosage: 20 MG, UNKNOWN
     Route: 065
  3. QWO [Suspect]
     Active Substance: COLLAGENASE CLOSTRIDIUM HISTOLYTICUM-AAES
     Indication: PRODUCT USED FOR UNKNOWN INDICATION
     Dosage: UNK UNKNOWN, UNKNOWN
     Route: 065
     Dates: start: 20210423

REACTIONS (4)
  - Off label use [Unknown]
  - Contusion [Recovering/Resolving]
  - Injection site bruising [Not Recovered/Not Resolved]
  - Skin discolouration [Not Recovered/Not Resolved]

NARRATIVE: CASE EVENT DATE: 2021
